FAERS Safety Report 20728120 (Version 1)
Quarter: 2022Q2

REPORT INFORMATION
  Report Type: Spontaneous
  Country: JP (occurrence: JP)
  Receive Date: 20220420
  Receipt Date: 20220420
  Transmission Date: 20220720
  Serious: Yes (Hospitalization)
  Sender: FDA-Public Use
  Company Number: JP-GRUNENTHAL-2022-103085

PATIENT
  Age: 8 Decade
  Sex: Female

DRUGS (3)
  1. TRAMADOL HYDROCHLORIDE [Suspect]
     Active Substance: TRAMADOL HYDROCHLORIDE
     Indication: Herpes zoster
     Dosage: 25 MILLIGRAM, 1/DAY
     Route: 048
  2. TRAMADOL HYDROCHLORIDE [Suspect]
     Active Substance: TRAMADOL HYDROCHLORIDE
     Indication: Pain
     Route: 048
  3. ACETAMINOPHEN [Concomitant]
     Active Substance: ACETAMINOPHEN
     Indication: Herpes zoster
     Dosage: UNK
     Route: 065

REACTIONS (2)
  - Phrenic nerve paralysis [Recovering/Resolving]
  - Nausea [Unknown]
